FAERS Safety Report 8709069 (Version 11)
Quarter: 2015Q3

REPORT INFORMATION
  Report Type: Report from Study
  Country: BR (occurrence: BR)
  Receive Date: 20120806
  Receipt Date: 20150828
  Transmission Date: 20151125
  Serious: Yes (Death, Hospitalization, Disabling, Other)
  Sender: FDA-Public Use
  Company Number: BR-ROCHE-1097258

PATIENT
  Age: 72 Year
  Sex: Female
  Weight: 69 kg

DRUGS (22)
  1. MABTHERA [Suspect]
     Active Substance: RITUXIMAB
     Route: 042
     Dates: start: 201402
  2. PURAN [Concomitant]
     Active Substance: LEVOTHYROXINE SODIUM
     Route: 065
  3. GLIFAGE [Concomitant]
     Active Substance: METFORMIN HYDROCHLORIDE
     Indication: DIABETES MELLITUS
     Route: 065
  4. MABTHERA [Suspect]
     Active Substance: RITUXIMAB
     Route: 042
     Dates: start: 20120218
  5. PRISTIQ EXTENDED RELEASE [Concomitant]
     Active Substance: DESVENLAFAXINE SUCCINATE
     Indication: DEPRESSION
     Route: 065
  6. QUETIAPINE [Concomitant]
     Active Substance: QUETIAPINE
     Dosage: AT NIGHT
     Route: 065
     Dates: start: 2014
  7. DORMONID [Suspect]
     Active Substance: MIDAZOLAM MALEATE
     Indication: SLEEP DISORDER
     Route: 065
  8. DIAMICRON [Concomitant]
     Active Substance: GLICLAZIDE
     Route: 065
  9. MIDAZOLAM [Concomitant]
     Active Substance: MIDAZOLAM\MIDAZOLAM HYDROCHLORIDE
  10. METHOTREXATE [Concomitant]
     Active Substance: METHOTREXATE
     Route: 065
  11. CHOLECALCIFEROL [Concomitant]
     Active Substance: CHOLECALCIFEROL
  12. JANUVIA [Concomitant]
     Active Substance: SITAGLIPTIN PHOSPHATE
     Route: 065
     Dates: start: 2014
  13. MABTHERA [Suspect]
     Active Substance: RITUXIMAB
     Indication: RHEUMATOID ARTHRITIS
     Dosage: LAST INFUSION WAS ON 06/MAR/2014.
     Route: 042
     Dates: start: 20111018
  14. MABTHERA [Suspect]
     Active Substance: RITUXIMAB
     Route: 042
     Dates: start: 20120303, end: 20120303
  15. EXODUS [Concomitant]
     Active Substance: ESCITALOPRAM OXALATE
     Indication: DEPRESSION
     Route: 065
     Dates: start: 2014
  16. PANTOPRAZOLE [Concomitant]
     Active Substance: PANTOPRAZOLE SODIUM
     Route: 065
  17. NORIPURUM [Concomitant]
     Active Substance: IRON POLYMALTOSE
  18. MABTHERA [Suspect]
     Active Substance: RITUXIMAB
     Dosage: LAST INFUSION WAS ON  06/MAR/2014.
     Route: 042
     Dates: start: 201403
  19. MABTHERA [Suspect]
     Active Substance: RITUXIMAB
     Route: 042
     Dates: start: 201302
  20. PURAN [Concomitant]
     Active Substance: LEVOTHYROXINE SODIUM
     Route: 065
  21. FORASEQ [Concomitant]
     Active Substance: BUDESONIDE\FORMOTEROL FUMARATE
  22. RIVASTIGMINE TARTRATE. [Concomitant]
     Active Substance: RIVASTIGMINE TARTRATE
     Route: 065

REACTIONS (12)
  - Arthropathy [Not Recovered/Not Resolved]
  - Tendon disorder [Not Recovered/Not Resolved]
  - Heart rate increased [Recovered/Resolved]
  - Emphysema [Not Recovered/Not Resolved]
  - Platelet count decreased [Recovering/Resolving]
  - Coma [Not Recovered/Not Resolved]
  - Arrhythmia [Unknown]
  - Anaemia [Unknown]
  - Dizziness [Unknown]
  - Asthenia [Unknown]
  - Haemorrhagic stroke [Fatal]
  - Arthralgia [Not Recovered/Not Resolved]

NARRATIVE: CASE EVENT DATE: 201207
